FAERS Safety Report 9337551 (Version 1)
Quarter: 2013Q2

REPORT INFORMATION
  Report Type: Spontaneous
  Country: PT (occurrence: PT)
  Receive Date: 20130607
  Receipt Date: 20130607
  Transmission Date: 20140414
  Serious: Yes (Hospitalization, Other)
  Sender: FDA-Public Use
  Company Number: PT-BAXTER-2013BAX020130

PATIENT
  Age: 59 Year
  Sex: Male

DRUGS (22)
  1. PHYSIONEAL 40 GLUCOSE 1,36% P/V / 13,6 MG/ML [Suspect]
     Indication: RENAL FAILURE CHRONIC
     Route: 033
     Dates: start: 20111012
  2. PHYSIONEAL 40 GLUCOSE 1,36% P/V / 13,6 MG/ML [Suspect]
     Indication: PERITONEAL DIALYSIS
  3. PHYSIONEAL 40 GLUCOSE 2,27% P/V / 22,7 MG/ML [Suspect]
     Indication: RENAL FAILURE CHRONIC
     Route: 033
     Dates: start: 20111012
  4. PHYSIONEAL 40 GLUCOSE 2,27% P/V / 22,7 MG/ML [Suspect]
     Indication: PERITONEAL DIALYSIS
  5. EXTRANEAL [Suspect]
     Indication: RENAL FAILURE CHRONIC
     Route: 033
     Dates: start: 20111012
  6. EXTRANEAL [Suspect]
     Indication: PERITONEAL DIALYSIS
  7. B COMPLEX [Concomitant]
     Indication: PRODUCT USED FOR UNKNOWN INDICATION
     Route: 065
  8. DIAMICRON LM [Concomitant]
     Indication: PRODUCT USED FOR UNKNOWN INDICATION
     Route: 065
  9. ATORVASTATIN [Concomitant]
     Indication: PRODUCT USED FOR UNKNOWN INDICATION
     Route: 065
  10. AAS [Concomitant]
     Indication: PRODUCT USED FOR UNKNOWN INDICATION
     Route: 065
  11. FOLICIL [Concomitant]
     Indication: PRODUCT USED FOR UNKNOWN INDICATION
     Route: 065
  12. CARVEDILOL [Concomitant]
     Indication: PRODUCT USED FOR UNKNOWN INDICATION
     Route: 065
  13. EPOETIN BETA [Concomitant]
     Indication: PRODUCT USED FOR UNKNOWN INDICATION
     Route: 065
  14. SEVELAMER [Concomitant]
     Indication: PRODUCT USED FOR UNKNOWN INDICATION
     Route: 065
  15. ENALAPRIL [Concomitant]
     Indication: PRODUCT USED FOR UNKNOWN INDICATION
     Route: 065
  16. NIFEDIPINE [Concomitant]
     Indication: PRODUCT USED FOR UNKNOWN INDICATION
     Route: 065
  17. CLARITHROMYCIN [Concomitant]
     Indication: RESPIRATORY TRACT INFECTION
     Route: 065
  18. CLARITHROMYCIN [Concomitant]
     Indication: ACUTE RESPIRATORY DISTRESS SYNDROME
  19. CIPROFLOXACIN [Concomitant]
     Indication: RESPIRATORY TRACT INFECTION
     Route: 065
  20. CIPROFLOXACIN [Concomitant]
     Indication: ACUTE RESPIRATORY DISTRESS SYNDROME
  21. CEFTAZIDIME [Concomitant]
     Indication: RESPIRATORY TRACT INFECTION
     Route: 065
  22. CEFTAZIDIME [Concomitant]
     Indication: ACUTE RESPIRATORY DISTRESS SYNDROME

REACTIONS (2)
  - Fungal peritonitis [Recovered/Resolved]
  - Respiratory tract infection [Unknown]
